FAERS Safety Report 10198031 (Version 2)
Quarter: 2014Q2

REPORT INFORMATION
  Report Type: Spontaneous
  Country: US (occurrence: US)
  Receive Date: 20140527
  Receipt Date: 20140624
  Transmission Date: 20141212
  Serious: Yes (Other)
  Sender: FDA-Public Use
  Company Number: US-PFIZER INC-2014139614

PATIENT
  Age: 85 Year
  Sex: Female
  Weight: 58.96 kg

DRUGS (2)
  1. ROBITUSSIN DM [Suspect]
     Indication: NASOPHARYNGITIS
     Dosage: 1 DF, EVERY 4 HRS
     Route: 048
     Dates: start: 20140513, end: 20140517
  2. ROBITUSSIN DM [Suspect]
     Indication: COUGH

REACTIONS (1)
  - Haematochezia [Recovered/Resolved]
